FAERS Safety Report 11000699 (Version 1)
Quarter: 2015Q2

REPORT INFORMATION
  Report Type: Spontaneous
  Country: US (occurrence: US)
  Receive Date: 20150408
  Receipt Date: 20150408
  Transmission Date: 20150821
  Serious: No
  Sender: FDA-Public Use
  Company Number: US-SA-2014SA142989

PATIENT
  Age: 58 Year
  Sex: Male

DRUGS (2)
  1. ALLEGRA [Suspect]
     Active Substance: FEXOFENADINE HYDROCHLORIDE
     Indication: MULTIPLE ALLERGIES
     Dosage: FREQUENCY: Q AM?PRODUCT START DATE: 5YEARS AGO
     Route: 048
  2. HYDROXYZINE [Concomitant]
     Active Substance: HYDROXYZINE\HYDROXYZINE HYDROCHLORIDE
     Indication: ERYTHEMA
     Route: 065

REACTIONS (4)
  - Erythema [Recovering/Resolving]
  - Malaise [Recovering/Resolving]
  - Withdrawal syndrome [Recovering/Resolving]
  - Dermatitis allergic [Recovering/Resolving]
